FAERS Safety Report 21387058 (Version 1)
Quarter: 2022Q3

REPORT INFORMATION
  Report Type: Spontaneous
  Country: US (occurrence: None)
  Receive Date: 20220927
  Receipt Date: 20220927
  Transmission Date: 20221027
  Serious: Yes (Hospitalization)
  Sender: FDA-Public Use
  Company Number: None

PATIENT
  Age: 72 Year
  Sex: Male
  Weight: 75.5 kg

DRUGS (2)
  1. HEPARIN [Suspect]
     Active Substance: HEPARIN SODIUM
  2. WARFARIN [Suspect]
     Active Substance: WARFARIN

REACTIONS (2)
  - Device related thrombosis [None]
  - Left ventricular dysfunction [None]

NARRATIVE: CASE EVENT DATE: 20220918
